FAERS Safety Report 5155542-0 (Version None)
Quarter: 2006Q4

REPORT INFORMATION
  Report Type: 
  Country: None (occurrence: None)
  Receive Date: 20061113
  Receipt Date: 20061030
  Transmission Date: 20070319
  Serious: Yes (Hospitalization)
  Sender: FDA-Public Use
  Company Number: 2006BI012261

PATIENT
  Age: 47 Year
  Sex: Female

DRUGS (1)
  1. AVONEX [Suspect]
     Indication: MULTIPLE SCLEROSIS
     Dosage: 30 UG; QW; IM
     Route: 030
     Dates: start: 19990801

REACTIONS (6)
  - ACCIDENT [None]
  - FALL [None]
  - HIP ARTHROPLASTY [None]
  - JOINT DISLOCATION [None]
  - MUSCLE SPASMS [None]
  - PROCEDURAL COMPLICATION [None]
